FAERS Safety Report 9119500 (Version 1)
Quarter: 2013Q1

REPORT INFORMATION
  Report Type: Spontaneous
  Country: US (occurrence: None)
  Receive Date: 20130221
  Receipt Date: 20130221
  Transmission Date: 20140127
  Serious: No
  Sender: FDA-Public Use
  Company Number: None

PATIENT
  Sex: 0

DRUGS (2)
  1. ADDERALL [Suspect]
     Route: 048
  2. ADDERALL XR 5 EXTENDED RELEASE ADDERALL XR [Suspect]
     Route: 048

REACTIONS (2)
  - Drug dispensing error [None]
  - Medication error [None]
